FAERS Safety Report 13099491 (Version 1)
Quarter: 2017Q1

REPORT INFORMATION
  Report Type: Report from Study
  Country: US (occurrence: US)
  Receive Date: 20170109
  Receipt Date: 20170109
  Transmission Date: 20170428
  Serious: Yes (Other)
  Sender: FDA-Public Use
  Company Number: US-AMGEN-USASL2017001570

PATIENT
  Age: 64 Year
  Sex: Female

DRUGS (1)
  1. KYPROLIS [Suspect]
     Active Substance: CARFILZOMIB
     Indication: PLASMA CELL MYELOMA
     Dosage: 43 MG, UNK, ON DAY 1, 2, 8,9, 15 , 16 FOR 28 DAYS
     Route: 065
     Dates: end: 201612

REACTIONS (3)
  - Thrombosis [Unknown]
  - Blood calcium increased [Unknown]
  - Pain [Unknown]
